FAERS Safety Report 11927085 (Version 2)
Quarter: 2016Q1

REPORT INFORMATION
  Report Type: Report from Study
  Country: IL (occurrence: IL)
  Receive Date: 20160119
  Receipt Date: 20160309
  Transmission Date: 20160526
  Serious: Yes (Other)
  Sender: FDA-Public Use
  Company Number: IL-NOVOPROD-476566

PATIENT
  Age: 64 Year
  Sex: Female

DRUGS (3)
  1. GLUCOMIN [Concomitant]
     Active Substance: METFORMIN HYDROCHLORIDE
     Dosage: UNK
  2. NOVORAPID [Suspect]
     Active Substance: INSULIN ASPART
     Indication: DIABETES MELLITUS
     Dosage: 48 U, QD (8U IN THE MORNING, 20U IN THE NOON, 20U IN THE EVENING)
     Route: 065
     Dates: start: 20090101
  3. LEVEMIR [Suspect]
     Active Substance: INSULIN DETEMIR
     Indication: DIABETES MELLITUS
     Dosage: 9 U, BID
     Route: 058
     Dates: start: 20090101

REACTIONS (1)
  - Hypoglycaemic unconsciousness [Recovered/Resolved]
